FAERS Safety Report 4322846-0 (Version None)
Quarter: 2004Q1

REPORT INFORMATION
  Report Type: 
  Country: None (occurrence: None)
  Receive Date: 20040322
  Receipt Date: 20040120
  Transmission Date: 20041129
  Serious: No
  Sender: FDA-Public Use
  Company Number: SU-2004-002070

PATIENT
  Age: 68 Year
  Sex: Female
  Weight: 127.0072 kg

DRUGS (6)
  1. BENICAR HCT [Suspect]
     Indication: HYPERTENSION
     Dosage: 40.125 MG QD PO
     Route: 048
     Dates: start: 20031121
  2. ASPIRIN [Concomitant]
  3. ALEVE [Concomitant]
  4. MAXZIDE [Concomitant]
  5. ADVAIR DISKUS 100/50 [Concomitant]
  6. ALBUTEROL [Concomitant]

REACTIONS (1)
  - BLOOD GLUCOSE INCREASED [None]
